FAERS Safety Report 4811135-3 (Version None)
Quarter: 2005Q4

REPORT INFORMATION
  Report Type: 
  Country: None (occurrence: None)
  Receive Date: 20051027
  Receipt Date: 20050616
  Transmission Date: 20060501
  Serious: Yes (Death, Hospitalization)
  Sender: FDA-Public Use
  Company Number: GB-GLAXOSMITHKLINE-B0384921A

PATIENT
  Age: 36 Year
  Sex: Female
  Weight: 76 kg

DRUGS (2)
  1. LITHIUM [Suspect]
     Dosage: 600MG UNKNOWN
     Route: 048
     Dates: start: 19960117
  2. AMITRIPTYLINE HCL [Concomitant]
     Indication: DEPRESSION
     Route: 065

REACTIONS (2)
  - CHEST PAIN [None]
  - CORONARY ARTERY DISSECTION [None]
